FAERS Safety Report 9436655 (Version 2)
Quarter: 2013Q4

REPORT INFORMATION
  Report Type: Spontaneous
  Country: US (occurrence: US)
  Receive Date: 20130802
  Receipt Date: 20131105
  Transmission Date: 20140711
  Serious: Yes (Death)
  Sender: FDA-Public Use
  Company Number: US-CELGENEUS-163-21880-13074665

PATIENT
  Age: 41 Year
  Sex: Male

DRUGS (4)
  1. REVLIMID [Suspect]
     Indication: PLASMA CELL MYELOMA
     Dosage: 25 MILLIGRAM
     Route: 048
  2. VELCADE [Concomitant]
     Indication: PLASMA CELL MYELOMA
     Route: 058
     Dates: start: 20121203, end: 20130401
  3. CYTOXAN [Concomitant]
     Indication: PLASMA CELL MYELOMA
     Route: 048
     Dates: start: 20121231, end: 20130401
  4. DEXAMETHASONE [Concomitant]
     Indication: PLASMA CELL MYELOMA
     Route: 048
     Dates: start: 20121231, end: 20130401

REACTIONS (1)
  - Melanocytic naevus [Fatal]
